FAERS Safety Report 24914168 (Version 1)
Quarter: 2025Q1

REPORT INFORMATION
  Report Type: Report from Study
  Country: US (occurrence: US)
  Receive Date: 20250202
  Receipt Date: 20250202
  Transmission Date: 20250408
  Serious: Yes (Other)
  Sender: ABBVIE
  Company Number: US-ABBVIE-6110967

PATIENT
  Age: 29 Year
  Sex: Male

DRUGS (1)
  1. SKYRIZI [Suspect]
     Active Substance: RISANKIZUMAB-RZAA
     Indication: Psoriasis
     Route: 058
     Dates: start: 20210326, end: 20240607

REACTIONS (4)
  - Depression suicidal [Recovering/Resolving]
  - Psoriasis [Unknown]
  - Suicide attempt [Unknown]
  - Mental disorder [Unknown]

NARRATIVE: CASE EVENT DATE: 20240301
